FAERS Safety Report 25881740 (Version 1)
Quarter: 2025Q4

REPORT INFORMATION
  Report Type: Spontaneous
  Country: US (occurrence: US)
  Receive Date: 20251005
  Receipt Date: 20251005
  Transmission Date: 20260117
  Serious: No
  Sender: ELI LILLY AND COMPANY
  Company Number: US-ELI_LILLY_AND_COMPANY-US202509008283

PATIENT
  Sex: Female

DRUGS (2)
  1. DONANEMAB [Suspect]
     Active Substance: DONANEMAB
     Indication: Product used for unknown indication
     Dosage: UNK, UNKNOWN
     Route: 065
     Dates: end: 20250704
  2. DONANEMAB [Suspect]
     Active Substance: DONANEMAB
     Dosage: UNK
     Dates: start: 20250730

REACTIONS (1)
  - Amyloid related imaging abnormalities [Unknown]
